FAERS Safety Report 9636365 (Version 3)
Quarter: 2014Q3

REPORT INFORMATION
  Report Type: Spontaneous
  Country: US (occurrence: US)
  Receive Date: 20131021
  Receipt Date: 20140804
  Transmission Date: 20150326
  Serious: Yes (Hospitalization, Other)
  Sender: FDA-Public Use
  Company Number: US-009507513-1310USA007973

PATIENT
  Sex: Female
  Weight: 56.6 kg

DRUGS (1)
  1. NUVARING [Suspect]
     Active Substance: ETHINYL ESTRADIOL\ETONOGESTREL
     Indication: CONTRACEPTION
     Dosage: 1 RING VAGINALLY, QM
     Route: 067
     Dates: start: 20110925, end: 20111022

REACTIONS (25)
  - Jugular vein thrombosis [Recovered/Resolved]
  - Iron deficiency [Unknown]
  - Acquired protein S deficiency [Unknown]
  - Pain in extremity [Unknown]
  - Thrombectomy [Unknown]
  - Stroke in evolution [Unknown]
  - Fatigue [Unknown]
  - Dyskinesia [Unknown]
  - Urinary tract infection [Unknown]
  - Cerebrovascular accident [Unknown]
  - Amnesia [Unknown]
  - Cerebral venous thrombosis [Unknown]
  - Treatment failure [Unknown]
  - Ovarian cyst [Unknown]
  - Menstrual disorder [Unknown]
  - Hypoaesthesia [Unknown]
  - Intracranial venous sinus thrombosis [Unknown]
  - Gingival bleeding [Unknown]
  - Cerebral ischaemia [Unknown]
  - Basal ganglia infarction [Unknown]
  - Antithrombin III decreased [Unknown]
  - Thrombectomy [Unknown]
  - Anticoagulation drug level below therapeutic [Unknown]
  - Intracranial venous sinus thrombosis [Recovered/Resolved]
  - Treatment failure [Unknown]

NARRATIVE: CASE EVENT DATE: 201110
